FAERS Safety Report 14357047 (Version 10)
Quarter: 2022Q2

REPORT INFORMATION
  Report Type: Spontaneous
  Country: FR (occurrence: FR)
  Receive Date: 20180105
  Receipt Date: 20220405
  Transmission Date: 20220721
  Serious: Yes (Hospitalization)
  Sender: FDA-Public Use
  Company Number: None

PATIENT
  Age: 63 Year
  Sex: Male
  Weight: 71 kg

DRUGS (12)
  1. VENLAFAXINE [Suspect]
     Active Substance: VENLAFAXINE HYDROCHLORIDE
     Indication: Product used for unknown indication
     Dosage: UNK, QD (NP)
     Route: 048
     Dates: start: 20171015, end: 20171015
  2. VENLAFAXINE [Suspect]
     Active Substance: VENLAFAXINE HYDROCHLORIDE
     Dosage: UNK
     Route: 048
     Dates: start: 20171015, end: 20171015
  3. MIRTAZAPINE [Suspect]
     Active Substance: MIRTAZAPINE
     Indication: Product used for unknown indication
     Dosage: 300 MILLIGRAM, QD
     Route: 048
     Dates: start: 20171015, end: 20171015
  4. MIRTAZAPINE [Suspect]
     Active Substance: MIRTAZAPINE
     Indication: Intentional overdose
  5. CLOMIPRAMINE [Suspect]
     Active Substance: CLOMIPRAMINE
     Indication: Product used for unknown indication
     Dosage: 50 DOSAGE FORM, QD
     Route: 048
     Dates: start: 20171015, end: 20171015
  6. CYAMEMAZINE [Suspect]
     Active Substance: CYAMEMAZINE
     Indication: Product used for unknown indication
     Dosage: 60 ML, QD (AS 2 BOTTLES OF 30 ML)
     Route: 048
     Dates: start: 20171015, end: 20171015
  7. CYAMEMAZINE [Suspect]
     Active Substance: CYAMEMAZINE
     Dosage: 60 MILLILITER, QD (3 FLACONS 30ML)
     Route: 048
     Dates: start: 20171015, end: 20171015
  8. CYAMEMAZINE [Suspect]
     Active Substance: CYAMEMAZINE
     Dosage: 3 FLACONS 30ML
     Route: 048
     Dates: start: 20171015, end: 20171015
  9. TRIMEPRAZINE [Suspect]
     Active Substance: TRIMEPRAZINE
     Indication: Product used for unknown indication
     Dosage: 60 ML, QD,2 BOTTLES OF 30 ML
     Route: 048
     Dates: start: 20171015, end: 20171015
  10. TRIMEPRAZINE [Suspect]
     Active Substance: TRIMEPRAZINE
     Dosage: 60 ML, UNK,2 FLACONS 30 ML
     Route: 048
  11. TRIMEPRAZINE [Suspect]
     Active Substance: TRIMEPRAZINE
     Dosage: 60 MILLILITER, QD
     Route: 048
     Dates: start: 20171015, end: 20171015
  12. CLOMIPRAMINE [Suspect]
     Active Substance: CLOMIPRAMINE
     Indication: Product used for unknown indication
     Dosage: 50 DOSAGE FORM
     Route: 048
     Dates: start: 20171015, end: 20171015

REACTIONS (5)
  - Extrapyramidal disorder [Recovered/Resolved]
  - Miosis [Recovered/Resolved]
  - Coma [Recovered/Resolved]
  - Suicide attempt [Unknown]
  - Intentional overdose [Recovered/Resolved]

NARRATIVE: CASE EVENT DATE: 20171015
